FAERS Safety Report 25530930 (Version 1)
Quarter: 2025Q3

REPORT INFORMATION
  Report Type: Spontaneous
  Country: CN (occurrence: CN)
  Receive Date: 20250708
  Receipt Date: 20250708
  Transmission Date: 20251021
  Serious: Yes (Other)
  Sender: PFIZER
  Company Number: CN-PFIZER INC-PV202500080123

PATIENT
  Sex: Female

DRUGS (13)
  1. METHYLPREDNISOLONE SODIUM SUCCINATE [Suspect]
     Active Substance: METHYLPREDNISOLONE SODIUM SUCCINATE
     Indication: Cholangitis
     Dosage: 4.5 MG/KG, DAILY
     Route: 042
  2. METHYLPREDNISOLONE SODIUM SUCCINATE [Suspect]
     Active Substance: METHYLPREDNISOLONE SODIUM SUCCINATE
     Dosage: 3.5 MG/KG, DAILY
  3. METHYLPREDNISOLONE SODIUM SUCCINATE [Suspect]
     Active Substance: METHYLPREDNISOLONE SODIUM SUCCINATE
     Dosage: 2 MG/KG, DAILY
  4. METHYLPREDNISOLONE SODIUM SUCCINATE [Suspect]
     Active Substance: METHYLPREDNISOLONE SODIUM SUCCINATE
     Dosage: 1 MG/KG, DAILY
  5. METHYLPREDNISOLONE [Suspect]
     Active Substance: METHYLPREDNISOLONE
     Route: 048
  6. CEFACLOR [Concomitant]
     Active Substance: CEFACLOR
  7. SULFAMETHOXAZOLE [Concomitant]
     Active Substance: SULFAMETHOXAZOLE
  8. URSODIOL [Concomitant]
     Active Substance: URSODIOL
     Indication: Cholangitis
  9. URSODIOL [Concomitant]
     Active Substance: URSODIOL
     Route: 048
  10. AMMONIUM GLYCYRRHIZATE\CYSTEINE HYDROCHLORIDE\GLYCINE [Concomitant]
     Active Substance: AMMONIUM GLYCYRRHIZATE\CYSTEINE HYDROCHLORIDE\GLYCINE
  11. FAT SOLUBLE VITAMINS NOS [Concomitant]
  12. CEFOPERAZONE SODIUM\SULBACTAM SODIUM [Concomitant]
     Active Substance: CEFOPERAZONE SODIUM\SULBACTAM SODIUM
     Indication: Cholangitis
     Route: 041
  13. ASPIRIN [Concomitant]
     Active Substance: ASPIRIN
     Indication: Cholangitis
     Dosage: 5 MG/KG, DAILY

REACTIONS (2)
  - Thrombocytosis [Recovering/Resolving]
  - Off label use [Unknown]
